FAERS Safety Report 7964682-X (Version None)
Quarter: 2011Q4

REPORT INFORMATION
  Report Type: 
  Country: None (occurrence: None)
  Receive Date: 20111208
  Receipt Date: 20111129
  Transmission Date: 20120403
  Serious: Yes (Other)
  Sender: FDA-Public Use
  Company Number: CA-BAYER-2011-114476

PATIENT
  Sex: Female

DRUGS (1)
  1. MIRENA [Suspect]
     Dosage: 20 MCG/24HR, CONT
     Route: 015
     Dates: start: 20110501

REACTIONS (12)
  - BLADDER DISORDER [None]
  - DARK CIRCLES UNDER EYES [None]
  - ALOPECIA [None]
  - NAUSEA [None]
  - MUSCLE SPASMS [None]
  - HAEMOGLOBIN INCREASED [None]
  - BREAST MASS [None]
  - NERVOUSNESS [None]
  - DIZZINESS [None]
  - ADNEXA UTERI PAIN [None]
  - SERUM FERRITIN INCREASED [None]
  - CYST [None]
